FAERS Safety Report 21498625 (Version 1)
Quarter: 2022Q4

REPORT INFORMATION
  Report Type: Spontaneous
  Country: PL (occurrence: PL)
  Receive Date: 20221024
  Receipt Date: 20221024
  Transmission Date: 20230113
  Serious: Yes (Hospitalization, Other)
  Sender: FDA-Public Use
  Company Number: PL-GILEAD-2022-0602060

PATIENT
  Age: 30 Year
  Sex: Male

DRUGS (17)
  1. TRUVADA [Suspect]
     Active Substance: EMTRICITABINE\TENOFOVIR DISOPROXIL FUMARATE
     Indication: Product used for unknown indication
     Dosage: UNK
     Route: 065
     Dates: start: 202102, end: 202111
  2. HUMAN RED BLOOD CELL [Concomitant]
     Active Substance: HUMAN RED BLOOD CELL
  3. DEXAMETHASONE [Concomitant]
     Active Substance: DEXAMETHASONE
  4. DOXORUBICIN [Concomitant]
     Active Substance: DOXORUBICIN
  5. BLEOMYCIN [Concomitant]
     Active Substance: BLEOMYCIN SULFATE
  6. VINBLASTINE [Concomitant]
     Active Substance: VINBLASTINE
  7. DACARBAZINE [Concomitant]
     Active Substance: DACARBAZINE
  8. HUMAN RED BLOOD CELL [Concomitant]
     Active Substance: HUMAN RED BLOOD CELL
  9. PLATELETS [Concomitant]
     Active Substance: HUMAN PLATELET, ALLOGENIC
  10. BISEPTOL [Concomitant]
     Active Substance: SULFAMETHOXAZOLE\TRIMETHOPRIM
  11. FOLIC ACID [Concomitant]
     Active Substance: FOLIC ACID
  12. ETHAMSYLATE [Concomitant]
     Active Substance: ETHAMSYLATE
  13. PRAZOL [OMEPRAZOLE] [Concomitant]
  14. PREDNISONE ACETATE [Concomitant]
     Active Substance: PREDNISONE ACETATE
  15. TORSEMIDE [Concomitant]
     Active Substance: TORSEMIDE
  16. FILGRASTIM [Concomitant]
     Active Substance: FILGRASTIM
  17. TIVICAY [Concomitant]
     Active Substance: DOLUTEGRAVIR SODIUM

REACTIONS (1)
  - Hodgkin^s disease [Not Recovered/Not Resolved]
